FAERS Safety Report 20180025 (Version 1)
Quarter: 2021Q4

REPORT INFORMATION
  Report Type: Spontaneous
  Country: US (occurrence: None)
  Receive Date: 20211213
  Receipt Date: 20211213
  Transmission Date: 20220304
  Serious: No
  Sender: FDA-Public Use
  Company Number: None

PATIENT
  Age: 48 Year
  Sex: Female
  Weight: 85.05 kg

DRUGS (11)
  1. BAMLANIVIMAB [Suspect]
     Active Substance: BAMLANIVIMAB
     Indication: COVID-19
     Dates: start: 20211212, end: 20211212
  2. LEVOXYL [Concomitant]
     Active Substance: LEVOTHYROXINE SODIUM
  3. VITAMIN C [Concomitant]
     Active Substance: ASCORBIC ACID
  4. VITAMIN D [Concomitant]
     Active Substance: VITAMIN D NOS
  5. ZINC [Concomitant]
     Active Substance: ZINC
  6. CARCITEN [Concomitant]
  7. N ACETYLCYSTENIE [Concomitant]
  8. KRILL OIL [Concomitant]
     Active Substance: DIETARY SUPPLEMENT\KRILL OIL
  9. FAMOTIDINE [Concomitant]
     Active Substance: FAMOTIDINE
  10. MUCINEX [Concomitant]
     Active Substance: GUAIFENESIN
  11. VITAMINS [Concomitant]
     Active Substance: VITAMINS

REACTIONS (8)
  - Tremor [None]
  - Headache [None]
  - Feeling abnormal [None]
  - Muscular weakness [None]
  - Head discomfort [None]
  - Cold sweat [None]
  - Palpitations [None]
  - Chest pain [None]

NARRATIVE: CASE EVENT DATE: 20211212
